FAERS Safety Report 8882325 (Version 2)
Quarter: 2012Q4

REPORT INFORMATION
  Report Type: 
  Country: CA (occurrence: CA)
  Receive Date: 20121105
  Receipt Date: 20121122
  Transmission Date: 20130627
  Serious: Yes (Other)
  Sender: FDA-Public Use
  Company Number: CHPA2012CA022688

PATIENT
  Age: 42 Year
  Sex: Female

DRUGS (2)
  1. NICOTINE PATCH [Suspect]
     Indication: SMOKING CESSATION THERAPY
     Dosage: 21 mg, UNK
     Route: 062
     Dates: start: 201207
  2. NICOTINE PATCH [Suspect]
     Dosage: 21 mg, UNK
     Route: 062
     Dates: start: 201210

REACTIONS (4)
  - Lung disorder [Not Recovered/Not Resolved]
  - Pneumothorax [Not Recovered/Not Resolved]
  - Incorrect dose administered [Unknown]
  - Product quality issue [None]
